FAERS Safety Report 10386828 (Version 1)
Quarter: 2014Q3

REPORT INFORMATION
  Report Type: Spontaneous
  Country: US (occurrence: US)
  Receive Date: 20140815
  Receipt Date: 20140815
  Transmission Date: 20150326
  Serious: Yes (Other)
  Sender: FDA-Public Use
  Company Number: US-ELI_LILLY_AND_COMPANY-US201408001541

PATIENT
  Sex: Female

DRUGS (4)
  1. HUMALOG [Suspect]
     Active Substance: INSULIN LISPRO
     Dosage: 40 U, TID
     Route: 065
  2. HUMALOG [Suspect]
     Active Substance: INSULIN LISPRO
     Indication: TYPE 2 DIABETES MELLITUS
     Dosage: 40 U, TID
     Route: 065
     Dates: start: 2011
  3. LANTUS [Concomitant]
     Active Substance: INSULIN GLARGINE
  4. HUMALOG [Suspect]
     Active Substance: INSULIN LISPRO
     Dosage: 40 U, TID
     Route: 065

REACTIONS (4)
  - Renal failure [Not Recovered/Not Resolved]
  - Retinopathy [Not Recovered/Not Resolved]
  - Underdose [Unknown]
  - Neuropathy peripheral [Not Recovered/Not Resolved]
